FAERS Safety Report 6748470-8 (Version None)
Quarter: 2010Q2

REPORT INFORMATION
  Report Type: 
  Country: None (occurrence: None)
  Receive Date: 20100527
  Receipt Date: 20100527
  Transmission Date: 20101027
  Serious: Yes (Disabling)
  Sender: FDA-Public Use
  Company Number: None

PATIENT
  Age: 88 Year
  Sex: Female
  Weight: 61.2356 kg

DRUGS (2)
  1. ACTONEL [Suspect]
     Indication: OSTEOPOROSIS
     Dosage: OVER DAILY FOR 2 DAYS FOR MO.
     Dates: start: 20041213, end: 20070618
  2. FOSAMAX [Suspect]
     Indication: OSTEOPOROSIS
     Dosage: ONCE DAILY
     Dates: start: 20010829, end: 20020501

REACTIONS (1)
  - FEMUR FRACTURE [None]
